FAERS Safety Report 7906922-9 (Version None)
Quarter: 2011Q4

REPORT INFORMATION
  Report Type: 
  Country: None (occurrence: None)
  Receive Date: 20111109
  Receipt Date: 20111109
  Transmission Date: 20120403
  Serious: Yes (Disabling, Other)
  Sender: FDA-Public Use
  Company Number: None

PATIENT
  Sex: Male
  Weight: 63.05 kg

DRUGS (3)
  1. NAPROXEN [Concomitant]
  2. RANITIDINE [Concomitant]
  3. CHANTIX [Suspect]
     Indication: SMOKING CESSATION THERAPY
     Dosage: .5 MG FOR 3 DAYS -} FIRST 3 DAYS; 1-2 MG FOR 5 DAYS 1 MG FOR 4 DAYS 2 MG FOR 1 DAY ORAL
     Route: 048
     Dates: start: 20111003, end: 20111010

REACTIONS (12)
  - DEAFNESS [None]
  - NERVOUS SYSTEM DISORDER [None]
  - DISTURBANCE IN ATTENTION [None]
  - CONFUSIONAL STATE [None]
  - HEADACHE [None]
  - SPEECH DISORDER [None]
  - ABNORMAL DREAMS [None]
  - NAUSEA [None]
  - DEPRESSION [None]
  - VISION BLURRED [None]
  - DIZZINESS [None]
  - SOMNOLENCE [None]
